FAERS Safety Report 5061314-8 (Version None)
Quarter: 2006Q3

REPORT INFORMATION
  Report Type: 
  Country: None (occurrence: None)
  Receive Date: 20060703
  Receipt Date: 20060325
  Transmission Date: 20061208
  Serious: No
  Sender: FDA-Public Use
  Company Number: 2006PV010892

PATIENT
  Age: 53 Year
  Sex: Female
  Weight: 88.4514 kg

DRUGS (6)
  1. SYMLIN [Suspect]
     Indication: DIABETES MELLITUS NON-INSULIN-DEPENDENT
     Dosage: 360 MCG;BID;SC
     Route: 058
     Dates: start: 20060325, end: 20060101
  2. NOVOLIN 70/30 [Concomitant]
  3. MICARDIS [Concomitant]
  4. LESCOL [Concomitant]
  5. STARLIX [Concomitant]
  6. ACTOPLUS MET [Concomitant]

REACTIONS (6)
  - CONFUSIONAL STATE [None]
  - DIZZINESS [None]
  - MEDICATION ERROR [None]
  - NAUSEA [None]
  - SOMNOLENCE [None]
  - TREMOR [None]
